FAERS Safety Report 10126283 (Version 2)
Quarter: 2014Q2

REPORT INFORMATION
  Report Type: Spontaneous
  Country: DE (occurrence: DE)
  Receive Date: 20140427
  Receipt Date: 20140623
  Transmission Date: 20141212
  Serious: Yes (Other)
  Sender: FDA-Public Use
  Company Number: DE-BRISTOL-MYERS SQUIBB COMPANY-20652921

PATIENT
  Age: 79 Year
  Sex: Female
  Weight: 60 kg

DRUGS (4)
  1. ELIQUIS [Suspect]
     Indication: CEREBROVASCULAR ACCIDENT PROPHYLAXIS
     Dosage: TABLET?FROM MAR13:5MG?FROM SEP/OCT13:2.5MG?FROM MAR14:5MG.?TOTAL DOSE:5MG
     Dates: start: 201303
  2. BLOPRESS [Concomitant]
  3. MOLSIDOMINE [Concomitant]
     Indication: CORONARY ARTERY DISEASE
  4. METOHEXAL SUCC [Concomitant]

REACTIONS (8)
  - Cardiac pacemaker insertion [Unknown]
  - Visual impairment [Recovering/Resolving]
  - Food craving [Recovering/Resolving]
  - Hyperhidrosis [Recovering/Resolving]
  - Hunger [Recovering/Resolving]
  - Urine output increased [Recovering/Resolving]
  - Asthenia [Recovering/Resolving]
  - Autonomic neuropathy [Recovering/Resolving]
